FAERS Safety Report 6321723-3 (Version None)
Quarter: 2009Q3

REPORT INFORMATION
  Report Type: 
  Country: None (occurrence: None)
  Receive Date: 20090821
  Receipt Date: 20090821
  Transmission Date: 20100115
  Serious: Yes (Death)
  Sender: FDA-Public Use
  Company Number: None

PATIENT
  Sex: Female
  Weight: 73.4827 kg

DRUGS (3)
  1. SERTRALINE HCL [Suspect]
     Indication: PANIC ATTACK
     Dosage: 100 MG 1X DAY
     Dates: start: 20090519
  2. HYDROCHLOROT [Concomitant]
  3. LISINOPRIL [Concomitant]

REACTIONS (14)
  - BLOOD PRESSURE FLUCTUATION [None]
  - CARDIO-RESPIRATORY ARREST [None]
  - CONVULSION [None]
  - DYSPNOEA [None]
  - FALL [None]
  - HEART RATE INCREASED [None]
  - HEART RATE IRREGULAR [None]
  - HYPERHIDROSIS [None]
  - HYPERVENTILATION [None]
  - LOSS OF CONSCIOUSNESS [None]
  - NAUSEA [None]
  - PANIC ATTACK [None]
  - SWELLING FACE [None]
  - VOMITING [None]
